FAERS Safety Report 12786239 (Version 1)
Quarter: 2016Q3

REPORT INFORMATION
  Report Type: Spontaneous
  Country: US (occurrence: US)
  Receive Date: 20160927
  Receipt Date: 20160927
  Transmission Date: 20161109
  Serious: No
  Sender: FDA-Public Use
  Company Number: US-FRI-1000085964

PATIENT
  Sex: Female
  Weight: 56.69 kg

DRUGS (9)
  1. LINZESS [Suspect]
     Active Substance: LINACLOTIDE
     Indication: ABDOMINAL DISTENSION
  2. DIGESTIVE ENZYMES [Concomitant]
     Active Substance: UNSPECIFIED INGREDIENT
     Dosage: UNK
  3. LINZESS [Suspect]
     Active Substance: LINACLOTIDE
     Indication: IRRITABLE BOWEL SYNDROME
     Dosage: 290 ?G, QD
     Route: 048
     Dates: start: 2015, end: 20160101
  4. LINZESS [Suspect]
     Active Substance: LINACLOTIDE
     Indication: FLATULENCE
     Dosage: 290 ?G, QD
     Route: 048
     Dates: start: 2016
  5. PROBIOTICS [Concomitant]
     Active Substance: PROBIOTICS NOS
     Dosage: UNK
  6. ARMOUR THYROID [Concomitant]
     Active Substance: THYROID, PORCINE
     Dosage: UNK
  7. UNSPECIFIED OTC [Concomitant]
     Dosage: UNK
  8. BIOIDENTICAL HORMONES [Concomitant]
     Dosage: UNK
  9. CHARCOAL [Concomitant]
     Active Substance: ACTIVATED CHARCOAL
     Dosage: UNK

REACTIONS (5)
  - Off label use [Not Recovered/Not Resolved]
  - Product packaging quantity issue [Not Recovered/Not Resolved]
  - Diarrhoea [Not Recovered/Not Resolved]
  - Drug ineffective [Not Recovered/Not Resolved]
  - Intentional product misuse [Not Recovered/Not Resolved]

NARRATIVE: CASE EVENT DATE: 2015
